FAERS Safety Report 17121734 (Version 1)
Quarter: 2019Q4

REPORT INFORMATION
  Report Type: Spontaneous
  Country: DE (occurrence: DE)
  Receive Date: 20191206
  Receipt Date: 20191206
  Transmission Date: 20200122
  Serious: Yes (Other)
  Sender: FDA-Public Use
  Company Number: DE-TEVA-2019-DE-1147046

PATIENT
  Age: 8 Year
  Sex: Female

DRUGS (5)
  1. DIACOMIT [Interacting]
     Active Substance: STIRIPENTOL
     Route: 065
  2. VALPROAT [Concomitant]
     Active Substance: VALPROATE SODIUM
  3. PANTOPRAZOL-RATIOPHARM 20 MG MAGENSAFTRESISTENTE TABLETTEN [Interacting]
     Active Substance: PANTOPRAZOLE
     Indication: VOMITING
  4. PANTOPRAZOL-RATIOPHARM 20 MG MAGENSAFTRESISTENTE TABLETTEN [Suspect]
     Active Substance: PANTOPRAZOLE
     Indication: DYSPEPSIA
     Dosage: 20 MILLIGRAM DAILY; TOOK 10 DAYS
     Route: 048
     Dates: start: 20191125
  5. FRISIUM [Concomitant]
     Active Substance: CLOBAZAM

REACTIONS (2)
  - Drug interaction [Unknown]
  - Epilepsy [Not Recovered/Not Resolved]
